FAERS Safety Report 5963096-1 (Version None)
Quarter: 2008Q4

REPORT INFORMATION
  Report Type: 
  Country: None (occurrence: None)
  Receive Date: 20081120
  Receipt Date: 20081120
  Transmission Date: 20090506
  Serious: Yes (Hospitalization)
  Sender: FDA-Public Use
  Company Number: None

PATIENT
  Age: 51 Year
  Sex: Female
  Weight: 67.586 kg

DRUGS (2)
  1. SORAFENIB [Suspect]
     Indication: BRAIN NEOPLASM
     Dosage: 800MG AND 400MG DAILY
     Dates: start: 20080903, end: 20081001
  2. TEMOZOLOMIDE [Suspect]
     Dosage: 150MG DAILY
     Dates: start: 20080903

REACTIONS (5)
  - ACTIVITIES OF DAILY LIVING IMPAIRED [None]
  - BACTERIAL INFECTION [None]
  - BLISTER [None]
  - DERMATITIS [None]
  - PALMAR-PLANTAR ERYTHRODYSAESTHESIA SYNDROME [None]
